FAERS Safety Report 17105689 (Version 1)
Quarter: 2019Q4

REPORT INFORMATION
  Report Type: Spontaneous
  Country: FR (occurrence: FR)
  Receive Date: 20191203
  Receipt Date: 20191203
  Transmission Date: 20200122
  Serious: Yes (Hospitalization)
  Sender: FDA-Public Use
  Company Number: FR-TEVA-2019-FR-1144987

PATIENT
  Age: 44 Year
  Sex: Male

DRUGS (7)
  1. CLOPIXOL ACTION PROLONGEE 200 MG/1 ML, SOLUTION INJECTABLE I.M. [Concomitant]
     Active Substance: ZUCLOPENTHIXOL
     Dosage: 100 MILLIGRAM
     Route: 030
  2. PAROXETINE. [Concomitant]
     Active Substance: PAROXETINE
     Route: 048
  3. PARACETAMOL [Concomitant]
     Active Substance: ACETAMINOPHEN
     Indication: PAIN
     Dosage: UNKNOWN
     Route: 048
  4. IBUPROFEN. [Suspect]
     Active Substance: IBUPROFEN
     Indication: ODYNOPHAGIA
     Dosage: UNKNOWN
     Route: 048
  5. FLUIDABAK 1,5 %, COLLYRE EN SOLUTION [Concomitant]
     Dosage: UNKNOWN
     Route: 047
  6. DEPAKINE 500 MG, COMPRIM? GASTRO-R?SISTANT [Concomitant]
     Active Substance: VALPROATE SODIUM
     Indication: EPILEPSY
     Route: 048
  7. CIALIS [Concomitant]
     Active Substance: TADALAFIL
     Dosage: UNKNOWN
     Route: 048

REACTIONS (1)
  - Pharyngeal abscess [Recovering/Resolving]

NARRATIVE: CASE EVENT DATE: 20191010
